FAERS Safety Report 19886062 (Version 1)
Quarter: 2021Q3

REPORT INFORMATION
  Report Type: Spontaneous
  Country: US (occurrence: US)
  Receive Date: 20210927
  Receipt Date: 20210927
  Transmission Date: 20211014
  Serious: No
  Sender: FDA-Public Use
  Company Number: US-CELLTRION INC.-2021US002867

PATIENT

DRUGS (1)
  1. INFLECTRA [Suspect]
     Active Substance: INFLIXIMAB-DYYB
     Indication: COLITIS ULCERATIVE
     Dosage: 100 MG (100MG VIAL/INFUSE INFLECTRA 500MG IN NS (DOSE VOLUME: 250 ML), AT 20ML/HR X 15 MIN, 40 ML/HR
     Route: 042
     Dates: start: 202102

REACTIONS (6)
  - Burning sensation [Unknown]
  - Off label use [Unknown]
  - Arthralgia [Unknown]
  - Back pain [Unknown]
  - Restless legs syndrome [Unknown]
  - Neck pain [Unknown]
